FAERS Safety Report 6215998-9 (Version None)
Quarter: 2009Q2

REPORT INFORMATION
  Report Type: 
  Country: None (occurrence: None)
  Receive Date: 20090605
  Receipt Date: 20090531
  Transmission Date: 20091009
  Serious: Yes (Death, Life-Threatening, Hospitalization, Disabling, Other)
  Sender: FDA-Public Use
  Company Number: IL-BAYER-200921376GPV

PATIENT
  Age: 72 Year
  Sex: Male
  Weight: 72 kg

DRUGS (64)
  1. MABCAMPATH [Suspect]
     Indication: CHRONIC LYMPHOCYTIC LEUKAEMIA
     Dosage: AS USED: 10 MG
     Route: 042
     Dates: start: 20090218, end: 20090218
  2. MABCAMPATH [Suspect]
     Dosage: AS USED: 30 MG
     Route: 042
     Dates: start: 20090219
  3. MABCAMPATH [Suspect]
     Dosage: 4. CYCLE
     Route: 042
     Dates: start: 20090308, end: 20090312
  4. MABCAMPATH [Suspect]
     Dosage: AS USED: 30 MG
     Route: 042
     Dates: start: 20090222, end: 20090226
  5. MABCAMPATH [Suspect]
     Dosage: 7. CYCLE
     Route: 042
     Dates: start: 20090329, end: 20090402
  6. MABCAMPATH [Suspect]
     Dosage: 9. CYCLE
     Route: 042
     Dates: start: 20090419, end: 20090419
  7. MABCAMPATH [Suspect]
     Dosage: 8. CYCLE
     Route: 042
     Dates: start: 20090405, end: 20090412
  8. MABCAMPATH [Suspect]
     Dosage: 6. CYCLE
     Route: 042
     Dates: start: 20090322, end: 20090326
  9. MABCAMPATH [Suspect]
     Dosage: AS USED: 3 MG
     Route: 058
     Dates: start: 20090217, end: 20090217
  10. MABCAMPATH [Suspect]
     Dosage: 9. CYCLE
     Route: 042
     Dates: start: 20090416, end: 20090416
  11. MABCAMPATH [Suspect]
     Dosage: 9. CYCLE
     Route: 042
     Dates: start: 20090414, end: 20090414
  12. MABCAMPATH [Suspect]
     Dosage: 5. CYCLE
     Route: 042
     Dates: start: 20090315, end: 20090319
  13. MABCAMPATH [Suspect]
     Dosage: AS USED: 30 MG
     Route: 042
     Dates: start: 20090301, end: 20090305
  14. PARACETAMOL [Concomitant]
     Indication: PREMEDICATION
     Dates: start: 20090414, end: 20090419
  15. PARACETAMOL [Concomitant]
     Dates: start: 20090322, end: 20090326
  16. PARACETAMOL [Concomitant]
     Dates: start: 20090308, end: 20090312
  17. PARACETAMOL [Concomitant]
     Dates: start: 20090222, end: 20090226
  18. PARACETAMOL [Concomitant]
     Dates: start: 20090217, end: 20090219
  19. PARACETAMOL [Concomitant]
     Dates: start: 20090301, end: 20090305
  20. PARACETAMOL [Concomitant]
     Dates: start: 20090315, end: 20090319
  21. PARACETAMOL [Concomitant]
     Dates: start: 20090329, end: 20090402
  22. PARACETAMOL [Concomitant]
     Dates: start: 20090405, end: 20090412
  23. DIPHENHYDRAMINE HCL [Concomitant]
     Indication: PREMEDICATION
     Dates: start: 20090414, end: 20090419
  24. DIPHENHYDRAMINE HCL [Concomitant]
     Dates: start: 20090322, end: 20090326
  25. DIPHENHYDRAMINE HCL [Concomitant]
     Dates: start: 20090308, end: 20090312
  26. DIPHENHYDRAMINE HCL [Concomitant]
     Dates: start: 20090222, end: 20090226
  27. DIPHENHYDRAMINE HCL [Concomitant]
     Dates: start: 20090217, end: 20090219
  28. DIPHENHYDRAMINE HCL [Concomitant]
     Dates: start: 20090301, end: 20090305
  29. DIPHENHYDRAMINE HCL [Concomitant]
     Dates: start: 20090315, end: 20090319
  30. DIPHENHYDRAMINE HCL [Concomitant]
     Dates: start: 20090329, end: 20090329
  31. DIPHENHYDRAMINE HCL [Concomitant]
     Dates: start: 20090405, end: 20090412
  32. TRIMETHOPRIM [Concomitant]
     Indication: PROPHYLAXIS
     Dates: start: 20090414, end: 20090419
  33. TRIMETHOPRIM [Concomitant]
     Dates: start: 20090322, end: 20090326
  34. TRIMETHOPRIM [Concomitant]
     Dates: start: 20090308, end: 20090312
  35. TRIMETHOPRIM [Concomitant]
     Dates: start: 20090222, end: 20090226
  36. TRIMETHOPRIM [Concomitant]
     Dates: start: 20090217, end: 20090219
  37. TRIMETHOPRIM [Concomitant]
     Dates: start: 20090301, end: 20090305
  38. TRIMETHOPRIM [Concomitant]
     Dates: start: 20090315, end: 20090319
  39. TRIMETHOPRIM [Concomitant]
     Dates: start: 20090329, end: 20090402
  40. TRIMETHOPRIM [Concomitant]
     Dates: start: 20090405, end: 20090412
  41. SULFAMETHOXAZOLE AND TRIMETHOPRIM [Concomitant]
     Indication: PROPHYLAXIS
     Dates: start: 20090414, end: 20090419
  42. SULFAMETHOXAZOLE AND TRIMETHOPRIM [Concomitant]
     Dates: start: 20090329, end: 20090402
  43. SULFAMETHOXAZOLE AND TRIMETHOPRIM [Concomitant]
     Dates: start: 20090315, end: 20090319
  44. SULFAMETHOXAZOLE AND TRIMETHOPRIM [Concomitant]
     Dates: start: 20090301, end: 20090305
  45. SULFAMETHOXAZOLE AND TRIMETHOPRIM [Concomitant]
     Dates: start: 20090217, end: 20090219
  46. SULFAMETHOXAZOLE AND TRIMETHOPRIM [Concomitant]
     Dates: start: 20090222, end: 20090226
  47. SULFAMETHOXAZOLE AND TRIMETHOPRIM [Concomitant]
     Dates: start: 20090308, end: 20090312
  48. SULFAMETHOXAZOLE AND TRIMETHOPRIM [Concomitant]
     Dates: start: 20090322, end: 20090326
  49. SULFAMETHOXAZOLE AND TRIMETHOPRIM [Concomitant]
     Dates: start: 20090405, end: 20090412
  50. PROMETAZINE [Concomitant]
     Indication: PREMEDICATION
     Dates: start: 20090222, end: 20090226
  51. HYDROCORTISONE [Concomitant]
     Indication: PREMEDICATION
     Dates: start: 20090405, end: 20090412
  52. HYDROCORTISONE [Concomitant]
     Dates: start: 20090322, end: 20090322
  53. HYDROCORTISONE [Concomitant]
     Dates: start: 20090329, end: 20090402
  54. HYDROCORTISONE [Concomitant]
     Dates: start: 20090315, end: 20090315
  55. HYDROCORTISONE [Concomitant]
     Dates: start: 20090222, end: 20090226
  56. HYDROCORTISONE [Concomitant]
     Dates: start: 20090301, end: 20090305
  57. HYDROCORTISONE [Concomitant]
     Dates: start: 20090308, end: 20090310
  58. PROMETHAZINE [Concomitant]
     Indication: PREMEDICATION
     Dates: start: 20090301, end: 20090301
  59. PROTHIAZINE [Concomitant]
     Indication: PREMEDICATION
     Dates: start: 20090308, end: 20090310
  60. PROTHIAZINE [Concomitant]
     Dates: start: 20090305, end: 20090305
  61. PHENERGAN [Concomitant]
     Indication: PROPHYLAXIS
     Dates: start: 20090322, end: 20090322
  62. PHENERGAN [Concomitant]
     Indication: PREMEDICATION
     Route: 048
     Dates: start: 20090405, end: 20090412
  63. PHENERGAN [Concomitant]
     Route: 048
     Dates: start: 20090322, end: 20090326
  64. PHENERGAN [Concomitant]
     Route: 048
     Dates: start: 20090329, end: 20090402

REACTIONS (11)
  - ASTHENIA [None]
  - CHILLS [None]
  - GRANULOCYTOPENIA [None]
  - HAEMOGLOBIN DECREASED [None]
  - HYPERHIDROSIS [None]
  - HYPERSENSITIVITY [None]
  - LEUKOPENIA [None]
  - MYELODYSPLASTIC SYNDROME [None]
  - PANCYTOPENIA [None]
  - SEPSIS [None]
  - URTICARIA [None]
